FAERS Safety Report 9537372 (Version 2)
Quarter: 2013Q4

REPORT INFORMATION
  Report Type: Spontaneous
  Country: US (occurrence: US)
  Receive Date: 20130919
  Receipt Date: 20131030
  Transmission Date: 20140711
  Serious: Yes (Other)
  Sender: FDA-Public Use
  Company Number: PHEH2013US019489

PATIENT
  Age: 57 Year
  Sex: Female
  Weight: 102 kg

DRUGS (13)
  1. GLEEVEC [Suspect]
     Indication: CHRONIC MYELOID LEUKAEMIA
     Dosage: 700 MG, DAILY
     Route: 048
     Dates: start: 2001, end: 20130627
  2. BABY ASPIRIN [Concomitant]
     Dosage: 81 MG, UNK
  3. PAXYL CREAM [Concomitant]
     Dosage: 500 MG, UNK
  4. NIACIN [Concomitant]
     Dosage: UNK UKN, UNK
  5. TEMAZEPAM [Concomitant]
     Indication: SLEEP DISORDER
     Dosage: UNK UKN, QHS
     Route: 048
  6. ATIVAN [Concomitant]
     Indication: ANXIETY
     Dosage: UNK UKN, UNK
     Route: 048
  7. ATIVAN [Concomitant]
     Indication: NAUSEA
  8. CARVEDILOL [Concomitant]
     Indication: BLOOD PRESSURE
     Dosage: UNK UKN, BID
     Route: 048
  9. ESCITALOPRAM [Concomitant]
     Indication: ANXIETY
     Dosage: UNK UKN, QD
     Route: 048
  10. ESCITALOPRAM [Concomitant]
     Indication: DEPRESSION
  11. LISINOPRIL [Concomitant]
     Indication: BLOOD PRESSURE
     Dosage: UNK UKN, QD
     Route: 048
  12. LISINOPRIL [Concomitant]
     Indication: PROPHYLAXIS
  13. SPIRONOLACTONE [Concomitant]
     Indication: BLOOD PRESSURE
     Dosage: UNK UKN, QD
     Route: 048

REACTIONS (2)
  - Cardiac disorder [Unknown]
  - Ejection fraction decreased [Not Recovered/Not Resolved]
